FAERS Safety Report 9759585 (Version 2)
Quarter: 2015Q3

REPORT INFORMATION
  Report Type: Spontaneous
  Country: US (occurrence: US)
  Receive Date: 20131216
  Receipt Date: 20150806
  Transmission Date: 20151125
  Serious: No
  Sender: FDA-Public Use
  Company Number: US-GILEAD-2010-0028237

PATIENT
  Age: 53 Year
  Sex: Female
  Weight: 68.49 kg

DRUGS (23)
  1. LETAIRIS [Suspect]
     Active Substance: AMBRISENTAN
     Indication: PULMONARY ARTERIAL HYPERTENSION
     Route: 048
     Dates: start: 20100309
  2. SPIRONOLACTONE. [Concomitant]
     Active Substance: SPIRONOLACTONE
  3. OMEPRAZOLE. [Concomitant]
     Active Substance: OMEPRAZOLE
  4. METAMUCIL [Concomitant]
     Active Substance: PLANTAGO SEED
  5. SYNTHROID [Concomitant]
     Active Substance: LEVOTHYROXINE SODIUM
  6. MULTIVITAMIN [Concomitant]
     Active Substance: VITAMINS
  7. LYRICA [Concomitant]
     Active Substance: PREGABALIN
  8. ZOCOR [Concomitant]
     Active Substance: SIMVASTATIN
  9. METHOTREXATE [Concomitant]
     Active Substance: METHOTREXATE
  10. TYLENOL [Concomitant]
     Active Substance: ACETAMINOPHEN
  11. FLOLAN [Concomitant]
     Active Substance: EPOPROSTENOL SODIUM
  12. ZYRTEC [Concomitant]
     Active Substance: CETIRIZINE HYDROCHLORIDE
  13. IMODIUM [Concomitant]
     Active Substance: LOPERAMIDE HYDROCHLORIDE
  14. AMBIEN [Concomitant]
     Active Substance: ZOLPIDEM TARTRATE
  15. FISH OIL [Concomitant]
     Active Substance: FISH OIL
  16. OXYGEN. [Concomitant]
     Active Substance: OXYGEN
  17. SODIUM CHLORIDE. [Concomitant]
     Active Substance: SODIUM CHLORIDE
  18. ASPIRIN. [Concomitant]
     Active Substance: ASPIRIN
  19. LASIX [Concomitant]
     Active Substance: FUROSEMIDE
  20. FOLIC ACID. [Concomitant]
     Active Substance: FOLIC ACID
  21. PLAVIX [Concomitant]
     Active Substance: CLOPIDOGREL BISULFATE
  22. ZOFRAN [Concomitant]
     Active Substance: ONDANSETRON HYDROCHLORIDE
  23. IRON [Concomitant]
     Active Substance: IRON

REACTIONS (1)
  - Malaise [Unknown]
